FAERS Safety Report 16014325 (Version 4)
Quarter: 2021Q3

REPORT INFORMATION
  Report Type: Spontaneous
  Country: US (occurrence: US)
  Receive Date: 20190227
  Receipt Date: 20210903
  Transmission Date: 20211014
  Serious: Yes (Death, Other)
  Sender: FDA-Public Use
  Company Number: US-ASTRAZENECA-2018SF65848

PATIENT
  Age: 61 Year
  Sex: Female
  Weight: 147 kg

DRUGS (38)
  1. NEXIUM [Suspect]
     Active Substance: ESOMEPRAZOLE MAGNESIUM
     Indication: GASTROOESOPHAGEAL REFLUX DISEASE
     Route: 048
     Dates: start: 1996, end: 2016
  2. DUEXIS [Concomitant]
     Active Substance: FAMOTIDINE\IBUPROFEN
  3. ASPIRIN. [Concomitant]
     Active Substance: ASPIRIN
     Dosage: OTC
  4. PAMELOR [Concomitant]
     Active Substance: NORTRIPTYLINE HYDROCHLORIDE
     Dosage: OTC
  5. FLEXERIL [Concomitant]
     Active Substance: CYCLOBENZAPRINE HYDROCHLORIDE
     Dosage: 150 RX
  6. PEPCID [Concomitant]
     Active Substance: FAMOTIDINE
  7. VISTARIL [Concomitant]
     Active Substance: HYDROXYZINE PAMOATE
     Dosage: 150 RX
  8. QUETIAPINE. [Concomitant]
     Active Substance: QUETIAPINE
     Dosage: OTC
  9. NORTRIPTYLINE [Concomitant]
     Active Substance: NORTRIPTYLINE
     Dosage: 150 RX
  10. DEXILANT [Suspect]
     Active Substance: DEXLANSOPRAZOLE
     Indication: GASTROOESOPHAGEAL REFLUX DISEASE
     Route: 065
     Dates: start: 2016
  11. LANSOPRAZOLE. [Suspect]
     Active Substance: LANSOPRAZOLE
     Route: 065
  12. PRAVASTATIN SODIUM. [Concomitant]
     Active Substance: PRAVASTATIN SODIUM
     Dosage: 150 RX
  13. PRAVASTATIN SODIUM. [Concomitant]
     Active Substance: PRAVASTATIN SODIUM
     Dosage: OTC
  14. ASPIRIN. [Concomitant]
     Active Substance: ASPIRIN
     Dosage: 150 RX
  15. SYNTHROID [Concomitant]
     Active Substance: LEVOTHYROXINE SODIUM
     Dosage: OTC
  16. NYSTATIN. [Concomitant]
     Active Substance: NYSTATIN
     Dosage: OTC
  17. NEXIUM [Suspect]
     Active Substance: ESOMEPRAZOLE MAGNESIUM
     Indication: GASTROOESOPHAGEAL REFLUX DISEASE
     Route: 048
     Dates: start: 1996
  18. ZANTAC [Concomitant]
     Active Substance: RANITIDINE HYDROCHLORIDE
     Dosage: 150 RX
  19. ZANTAC [Concomitant]
     Active Substance: RANITIDINE HYDROCHLORIDE
     Dosage: OTC
  20. VISTARIL [Concomitant]
     Active Substance: HYDROXYZINE PAMOATE
     Dosage: OTC
  21. NYSTATIN. [Concomitant]
     Active Substance: NYSTATIN
     Dosage: 150 RX
  22. QUETIAPINE. [Concomitant]
     Active Substance: QUETIAPINE
     Dosage: 150 RX
  23. KLONOPIN [Concomitant]
     Active Substance: CLONAZEPAM
     Dosage: 150 RX
  24. KLONOPIN [Concomitant]
     Active Substance: CLONAZEPAM
     Dosage: OTC
  25. DEXILANT [Suspect]
     Active Substance: DEXLANSOPRAZOLE
     Indication: GASTROOESOPHAGEAL REFLUX DISEASE
     Route: 065
     Dates: start: 1996, end: 2016
  26. PAMELOR [Concomitant]
     Active Substance: NORTRIPTYLINE HYDROCHLORIDE
     Dosage: 150 RX
  27. NORTRIPTYLINE [Concomitant]
     Active Substance: NORTRIPTYLINE
     Dosage: OTC
  28. OLMESARTAN [Concomitant]
     Active Substance: OLMESARTAN
     Dosage: 150 RX
  29. NITROSTAT [Concomitant]
     Active Substance: NITROGLYCERIN
     Dosage: 150 RX
  30. NITROSTAT [Concomitant]
     Active Substance: NITROGLYCERIN
     Dosage: OTC
  31. TAGAMET [Concomitant]
     Active Substance: CIMETIDINE
  32. SYNTHROID [Concomitant]
     Active Substance: LEVOTHYROXINE SODIUM
     Dosage: 150 RX
  33. SEVELAMER [Concomitant]
     Active Substance: SEVELAMER
     Dosage: 150 RX
  34. CRESTOR [Concomitant]
     Active Substance: ROSUVASTATIN CALCIUM
     Route: 065
  35. SEVELAMER [Concomitant]
     Active Substance: SEVELAMER
     Dosage: OTC
  36. OMEPRAZOLE. [Suspect]
     Active Substance: OMEPRAZOLE
     Dosage: GENERIC
     Route: 065
  37. FLEXERIL [Concomitant]
     Active Substance: CYCLOBENZAPRINE HYDROCHLORIDE
     Dosage: OTC
  38. OLMESARTAN [Concomitant]
     Active Substance: OLMESARTAN
     Dosage: OTC

REACTIONS (10)
  - Rebound acid hypersecretion [Unknown]
  - Pulmonary embolism [Fatal]
  - Chronic kidney disease-mineral and bone disorder [Unknown]
  - Acute respiratory failure [Fatal]
  - Cardiogenic shock [Fatal]
  - Renal failure [Not Recovered/Not Resolved]
  - Acute kidney injury [Not Recovered/Not Resolved]
  - Nephrogenic anaemia [Unknown]
  - Chronic kidney disease [Not Recovered/Not Resolved]
  - Renal tubular necrosis [Unknown]

NARRATIVE: CASE EVENT DATE: 2016
